FAERS Safety Report 6204443-5 (Version None)
Quarter: 2009Q2

REPORT INFORMATION
  Report Type: 
  Country: None (occurrence: None)
  Receive Date: 20090521
  Receipt Date: 20090511
  Transmission Date: 20091009
  Serious: Yes (Hospitalization, Other)
  Sender: FDA-Public Use
  Company Number: US025595

PATIENT
  Age: 22 Year
  Sex: Female
  Weight: 50 kg

DRUGS (5)
  1. MODAFINIL [Suspect]
     Indication: NARCOLEPSY
     Dosage: 100 MG (100 MG, 1 IN 1 D), ORAL, 200 MG (MG, 1 IN 1 D), ORAL, 300 MG (300 MG, 1 IN 1 D), ORAL, 200 M
     Route: 048
     Dates: start: 20080722, end: 20080728
  2. MODAFINIL [Suspect]
     Indication: NARCOLEPSY
     Dosage: 100 MG (100 MG, 1 IN 1 D), ORAL, 200 MG (MG, 1 IN 1 D), ORAL, 300 MG (300 MG, 1 IN 1 D), ORAL, 200 M
     Route: 048
     Dates: start: 20080729, end: 20081221
  3. MODAFINIL [Suspect]
     Indication: NARCOLEPSY
     Dosage: 100 MG (100 MG, 1 IN 1 D), ORAL, 200 MG (MG, 1 IN 1 D), ORAL, 300 MG (300 MG, 1 IN 1 D), ORAL, 200 M
     Route: 048
     Dates: start: 20081222, end: 20090101
  4. MODAFINIL [Suspect]
     Indication: NARCOLEPSY
     Dosage: 100 MG (100 MG, 1 IN 1 D), ORAL, 200 MG (MG, 1 IN 1 D), ORAL, 300 MG (300 MG, 1 IN 1 D), ORAL, 200 M
     Route: 048
     Dates: start: 20090101
  5. LEVONORGESTREL AND ETHINYL ESTRADIOL [Suspect]

REACTIONS (7)
  - BLOOD PRESSURE ABNORMAL [None]
  - DRUG INTERACTION [None]
  - LOSS OF CONSCIOUSNESS [None]
  - MALAISE [None]
  - PALPITATIONS [None]
  - SINUS TACHYCARDIA [None]
  - SYNCOPE [None]
